FAERS Safety Report 8603550-7 (Version None)
Quarter: 2012Q3

REPORT INFORMATION
  Report Type: 
  Country: None (occurrence: None)
  Receive Date: 20120817
  Receipt Date: 20120814
  Transmission Date: 20120928
  Serious: Yes (Hospitalization, Other)
  Sender: FDA-Public Use
  Company Number: CA-ROCHE-1076123

PATIENT
  Sex: Male
  Weight: 79.45 kg

DRUGS (12)
  1. SPIRIVA [Concomitant]
  2. FLUTICASONE PROPIONATE [Concomitant]
  3. DIDROCAL [Concomitant]
  4. COLCHICINE [Concomitant]
  5. ACTEMRA [Suspect]
     Indication: RHEUMATOID ARTHRITIS
     Route: 042
     Dates: start: 20111215
  6. PRADAXA [Concomitant]
  7. LIPITOR [Concomitant]
  8. PREDNISONE TAB [Concomitant]
  9. SPIRONOLACTONE [Concomitant]
  10. SYNTHROID [Concomitant]
  11. BISOPROLOL [Concomitant]
  12. LANSOPRAZOLE [Concomitant]

REACTIONS (5)
  - BILE DUCT OBSTRUCTION [None]
  - ATRIAL FIBRILLATION [None]
  - ABDOMINAL PAIN [None]
  - MALAISE [None]
  - PANCREATIC CARCINOMA [None]
